FAERS Safety Report 15948867 (Version 1)
Quarter: 2019Q1

REPORT INFORMATION
  Report Type: Spontaneous
  Country: IT (occurrence: IT)
  Receive Date: 20190212
  Receipt Date: 20190212
  Transmission Date: 20190417
  Serious: Yes (Other)
  Sender: FDA-Public Use
  Company Number: IT-ACCORD-102241

PATIENT
  Age: 58 Year
  Sex: Female
  Weight: 58 kg

DRUGS (5)
  1. OXALIPLATIN. [Suspect]
     Active Substance: OXALIPLATIN
     Indication: ADENOCARCINOMA OF COLON
     Route: 042
     Dates: start: 20180405, end: 20180510
  2. ENTACT [Concomitant]
     Active Substance: ESCITALOPRAM OXALATE
  3. XANAX [Concomitant]
     Active Substance: ALPRAZOLAM
  4. FLUOROURACIL. [Suspect]
     Active Substance: FLUOROURACIL
     Indication: ADENOCARCINOMA OF COLON
     Dosage: 3912 CD
     Route: 040
     Dates: start: 20180405, end: 20180510
  5. LEVOLEUCOVORIN. [Concomitant]
     Active Substance: LEVOLEUCOVORIN

REACTIONS (7)
  - Dyspepsia [Recovering/Resolving]
  - Nausea [Recovering/Resolving]
  - Ageusia [Recovering/Resolving]
  - Paraesthesia [Recovering/Resolving]
  - Neutropenia [Recovering/Resolving]
  - Lethargy [Recovering/Resolving]
  - Asthenia [Recovering/Resolving]

NARRATIVE: CASE EVENT DATE: 20180408
